FAERS Safety Report 11239670 (Version 1)
Quarter: 2015Q3

REPORT INFORMATION
  Report Type: Spontaneous
  Country: US (occurrence: None)
  Receive Date: 20150701
  Receipt Date: 20150701
  Transmission Date: 20151125
  Serious: Yes (Other)
  Sender: FDA-Public Use
  Company Number: None

PATIENT
  Age: 24 Year
  Sex: Female
  Weight: 72.58 kg

DRUGS (4)
  1. ZOLOFT [Suspect]
     Active Substance: SERTRALINE HYDROCHLORIDE
     Indication: ANXIETY
     Dosage: ONCE
     Route: 048
  2. ZOLOFT [Suspect]
     Active Substance: SERTRALINE HYDROCHLORIDE
     Indication: DEPRESSION
     Dosage: ONCE
     Route: 048
  3. LAMICTAL [Concomitant]
     Active Substance: LAMOTRIGINE
  4. VITAMIN D PILLS [Concomitant]

REACTIONS (8)
  - Confusional state [None]
  - Nausea [None]
  - Hyperphagia [None]
  - Vomiting [None]
  - Anxiety [None]
  - Hyperhidrosis [None]
  - Dizziness [None]
  - Tachyphrenia [None]

NARRATIVE: CASE EVENT DATE: 20150628
